FAERS Safety Report 4567848-4 (Version None)
Quarter: 2005Q1

REPORT INFORMATION
  Report Type: 
  Country: None (occurrence: None)
  Receive Date: 20050202
  Receipt Date: 20041029
  Transmission Date: 20050727
  Serious: No
  Sender: FDA-Public Use
  Company Number: US-GLAXOSMITHKLINE-A0531858A

PATIENT
  Sex: Female

DRUGS (3)
  1. AVANDAMET [Suspect]
     Route: 048
     Dates: start: 20040501
  2. ADVAIR DISKUS 100/50 [Concomitant]
  3. SINGULAIR [Concomitant]

REACTIONS (1)
  - ALOPECIA [None]
